FAERS Safety Report 8085535-5 (Version None)
Quarter: 2012Q1

REPORT INFORMATION
  Report Type: 
  Country: None (occurrence: None)
  Receive Date: 20120128
  Receipt Date: 20110609
  Transmission Date: 20120608
  Serious: No
  Sender: FDA-Public Use
  Company Number: US-ABBOTT-11P-163-0711465-00

PATIENT
  Sex: Female
  Weight: 54.48 kg

DRUGS (8)
  1. HYDROCODONE BITARTRATE [Concomitant]
     Indication: ARTHRALGIA
  2. NAPROXEN [Concomitant]
     Indication: PAIN
  3. NAPROXEN [Concomitant]
     Indication: CROHN'S DISEASE
  4. PENTASA [Concomitant]
     Indication: CROHN'S DISEASE
  5. REMICADE [Suspect]
     Indication: CROHN'S DISEASE
     Dates: end: 20101201
  6. IRON [Concomitant]
     Indication: ANAEMIA
  7. HUMIRA [Suspect]
     Indication: CROHN'S DISEASE
     Dates: start: 20101201
  8. PREVACID [Concomitant]
     Indication: PRODUCT USED FOR UNKNOWN INDICATION

REACTIONS (9)
  - INJECTION SITE HAEMATOMA [None]
  - MASS [None]
  - INJECTION SITE PAIN [None]
  - INJECTION SITE SWELLING [None]
  - MALAISE [None]
  - NAUSEA [None]
  - ARTHRALGIA [None]
  - ARTHRITIS [None]
  - DRUG INEFFECTIVE [None]
